FAERS Safety Report 4372551-X (Version None)
Quarter: 2004Q2

REPORT INFORMATION
  Report Type: 
  Country: None (occurrence: None)
  Receive Date: 20040526
  Receipt Date: 20010311
  Transmission Date: 20050107
  Serious: No
  Sender: FDA-Public Use
  Company Number: 04H-007-0261679-00

PATIENT
  Age: 76 Year
  Sex: Female
  Weight: 70 kg

DRUGS (15)
  1. PRECEDEX [Suspect]
     Indication: SEDATION
     Dosage: SEE IMAGE
     Route: 042
     Dates: start: 20040505, end: 20040506
  2. NOREPINEPRINE [Concomitant]
  3. FENTANYL [Concomitant]
  4. RANITIDINE [Concomitant]
  5. HYDROCORTISONE [Concomitant]
  6. NADROPARIN [Concomitant]
  7. VANCOMYCIN [Concomitant]
  8. CEFOPERAZONE SODIUM [Concomitant]
  9. MINOCYCLINE [Concomitant]
  10. ALBUTEROL SULFATE [Concomitant]
  11. IPRATROPIUM BROMIDE [Concomitant]
  12. NITROGLYCERIN [Concomitant]
  13. ASPIRIN [Concomitant]
  14. FUROSEMIDE [Concomitant]
  15. IRON [Concomitant]

REACTIONS (2)
  - HAEMATURIA [None]
  - RASH ERYTHEMATOUS [None]
